FAERS Safety Report 7067113 (Version 2)
Quarter: 2014Q3

REPORT INFORMATION
  Report Type: Spontaneous
  Country: US (occurrence: None)
  Receive Date: 20090723
  Receipt Date: 20140904
  Transmission Date: 20150326
  Serious: Yes (Hospitalization, Other)
  Sender: FDA-Public Use
  Company Number: 2009S1005530

PATIENT
  Age: 73 Year
  Sex: Male

DRUGS (9)
  1. PHOSPHO-SODA [Suspect]
     Active Substance: SODIUM PHOSPHATE, DIBASIC\SODIUM PHOSPHATE, MONOBASIC
     Indication: COLONOSCOPY
     Route: 048
     Dates: start: 20070930, end: 20070930
  2. FLOMAX [Concomitant]
     Active Substance: TAMSULOSIN HYDROCHLORIDE
  3. ADVAIR DISKUS [Concomitant]
     Active Substance: FLUTICASONE PROPIONATE\SALMETEROL XINAFOATE
  4. CYCLOBENZAPRINE (CYCLOBENZAPRINE) [Concomitant]
     Active Substance: CYCLOBENZAPRINE
  5. BENICAR OLMESARTAN (MEDOXOMIL) [Concomitant]
  6. DESMOPRESSIN (DESMOPRESSIN) [Suspect]
     Active Substance: DESMOPRESSIN
  7. ACIPHEX [Concomitant]
     Active Substance: RABEPRAZOLE SODIUM
  8. EFFEXOR (VENLAFAXINE HYDROCHLORIDE) [Concomitant]
  9. FELDENE (PIROXICAM) [Concomitant]

REACTIONS (20)
  - Renal failure chronic [None]
  - Intervertebral disc degeneration [None]
  - Hyponatraemia [None]
  - Back pain [None]
  - Haemorrhage [None]
  - Anaemia [None]
  - Haemorrhoidal haemorrhage [None]
  - Gastrointestinal haemorrhage [None]
  - Dehydration [None]
  - Acute coronary syndrome [None]
  - Renal cyst [None]
  - Blood creatinine increased [None]
  - Gastritis [None]
  - Nausea [None]
  - Blood pressure increased [None]
  - Nephroangiosclerosis [None]
  - Blood pressure orthostatic [None]
  - Vomiting [None]
  - Blood pressure decreased [None]
  - Gout [None]

NARRATIVE: CASE EVENT DATE: 200710
